FAERS Safety Report 7557930-1 (Version None)
Quarter: 2011Q2

REPORT INFORMATION
  Report Type: 
  Country: None (occurrence: None)
  Receive Date: 20110620
  Receipt Date: 20110610
  Transmission Date: 20111010
  Serious: Yes (Life-Threatening, Hospitalization)
  Sender: FDA-Public Use
  Company Number: B0723059A

PATIENT
  Sex: Male
  Weight: 78.5 kg

DRUGS (3)
  1. COMBIVIR [Suspect]
     Indication: HIV INFECTION
     Dosage: 1TAB TWICE PER DAY
     Route: 048
     Dates: start: 20050818, end: 20110518
  2. UNKNOWN DRUG [Suspect]
     Indication: DRUG ABUSE
  3. MARAVIROC [Suspect]
     Indication: HIV INFECTION
     Dosage: 300MG TWICE PER DAY
     Route: 048
     Dates: start: 20050818, end: 20110518

REACTIONS (2)
  - DRUG ABUSE [None]
  - HYPERKALAEMIA [None]
